FAERS Safety Report 23791120 (Version 1)
Quarter: 2024Q2

REPORT INFORMATION
  Report Type: Spontaneous
  Country: NL (occurrence: NL)
  Receive Date: 20240428
  Receipt Date: 20240428
  Transmission Date: 20240716
  Serious: Yes (Other)
  Sender: FDA-Public Use
  Company Number: None

PATIENT
  Age: 46 Year
  Sex: Female
  Weight: 67 kg

DRUGS (2)
  1. QUETIAPINE [Suspect]
     Active Substance: QUETIAPINE
     Indication: Sleep disorder
     Dosage: 12.5 MG, BEFORE GOING TO SLEEP
     Dates: start: 20180501
  2. VORTIOXETINE [Suspect]
     Active Substance: VORTIOXETINE
     Indication: Panic reaction
     Dosage: 20MG, 1 X PER DAY 1 TABLET
     Dates: start: 20180515

REACTIONS (5)
  - Restless arm syndrome [Recovering/Resolving]
  - Visual impairment [Not Recovered/Not Resolved]
  - Weight increased [Not Recovered/Not Resolved]
  - Restless legs syndrome [Recovering/Resolving]
  - Dry eye [Not Recovered/Not Resolved]
